FAERS Safety Report 11442535 (Version 2)
Quarter: 2015Q3

REPORT INFORMATION
  Report Type: Spontaneous
  Country: US (occurrence: US)
  Receive Date: 20150901
  Receipt Date: 20150925
  Transmission Date: 20151125
  Serious: Yes (Hospitalization, Disabling, Other)
  Sender: FDA-Public Use
  Company Number: US-009507513-1508USA013910

PATIENT
  Sex: Female
  Weight: 57.7 kg

DRUGS (4)
  1. PREMPRO [Concomitant]
     Active Substance: ESTROGENS, CONJUGATED\MEDROXYPROGESTERONE ACETATE
     Indication: OSTEOPOROSIS
  2. FOSAMAX [Suspect]
     Active Substance: ALENDRONATE SODIUM
     Indication: OSTEOPOROSIS
  3. FOSAMAX [Suspect]
     Active Substance: ALENDRONATE SODIUM
     Indication: OSTEOPENIA
     Dosage: 70 MG, QW
     Route: 048
     Dates: start: 20001201
  4. FOSAMAX PLUS D [Suspect]
     Active Substance: ALENDRONATE SODIUM\CHOLECALCIFEROL
     Indication: OSTEOPENIA
     Dosage: 70 MG/2800UQW
     Route: 048
     Dates: start: 20051108, end: 20051130

REACTIONS (39)
  - Acute kidney injury [Recovering/Resolving]
  - Pain in extremity [Unknown]
  - Emotional distress [Unknown]
  - Surgery [Unknown]
  - Hypertension [Unknown]
  - Balance disorder [Unknown]
  - Bursitis [Unknown]
  - Hyperglycaemia [Unknown]
  - Haemorrhoid operation [Unknown]
  - Constipation [Not Recovered/Not Resolved]
  - Rhabdomyolysis [Recovered/Resolved]
  - Femur fracture [Recovered/Resolved]
  - Leukocytosis [Unknown]
  - Hypogonadism [Unknown]
  - Haemorrhagic disorder [Unknown]
  - Drug ineffective [Unknown]
  - Nausea [Unknown]
  - Femur fracture [Unknown]
  - Atypical femur fracture [Not Recovered/Not Resolved]
  - Osteoarthritis [Unknown]
  - Spinal osteoarthritis [Unknown]
  - Depression [Unknown]
  - Arthralgia [Unknown]
  - Arthralgia [Unknown]
  - Intramedullary rod insertion [Unknown]
  - Haemorrhagic anaemia [Unknown]
  - Intervertebral disc degeneration [Unknown]
  - Intramedullary rod insertion [Unknown]
  - Low turnover osteopathy [Unknown]
  - Pain [Unknown]
  - Medical device removal [Unknown]
  - Anaemia postoperative [Unknown]
  - Fracture delayed union [Unknown]
  - Tenosynovitis [Unknown]
  - Liver function test abnormal [Unknown]
  - Muscle contracture [Unknown]
  - Osteoarthritis [Unknown]
  - Hypokalaemia [Unknown]
  - Hypercholesterolaemia [Unknown]

NARRATIVE: CASE EVENT DATE: 20020429
